FAERS Safety Report 9763023 (Version 2)
Quarter: 2013Q4

REPORT INFORMATION
  Report Type: Spontaneous
  Country: PR (occurrence: PR)
  Receive Date: 20131216
  Receipt Date: 20131216
  Transmission Date: 20140711
  Serious: No
  Sender: FDA-Public Use
  Company Number: PR-BAXTER-2013BAX047853

PATIENT
  Age: 65 Day
  Sex: Male

DRUGS (8)
  1. 5% SODIUM CHLORIDE INJECTION [Suspect]
     Indication: PARENTERAL NUTRITION
     Route: 065
  2. PREMASOL 6% [Suspect]
     Indication: PARENTERAL NUTRITION
     Route: 065
  3. 70% DEXTROSE INJECTION USP [Suspect]
     Indication: PARENTERAL NUTRITION
     Route: 065
  4. MAGNESIUM SULPHATE [Suspect]
     Indication: PARENTERAL NUTRITION
     Route: 065
  5. POTASSIUM CHLORIDE [Suspect]
     Indication: PARENTERAL NUTRITION
     Route: 065
  6. CALCIUM GLUCONATE [Suspect]
     Indication: PARENTERAL NUTRITION
     Route: 065
  7. L-CARNITINE [Suspect]
     Indication: PARENTERAL NUTRITION
     Route: 065
  8. MVI PEDIATRIC [Suspect]
     Indication: PARENTERAL NUTRITION
     Route: 065

REACTIONS (1)
  - Hypercalcaemia [Recovered/Resolved]
